FAERS Safety Report 5759639-3 (Version None)
Quarter: 2008Q2

REPORT INFORMATION
  Report Type: 
  Country: None (occurrence: None)
  Receive Date: 20080605
  Receipt Date: 20080527
  Transmission Date: 20081010
  Serious: Yes (Disabling)
  Sender: FDA-Public Use
  Company Number: GB-TEVA-172090ISR

PATIENT
  Age: 50 Year
  Sex: Female

DRUGS (5)
  1. DIAZEPAM [Suspect]
  2. MIRTAZAPINE [Suspect]
     Dates: start: 20071101
  3. ACAMPROSATE [Suspect]
  4. VENLAFAXINE HCL [Suspect]
  5. ARIPIPRAZOLE [Suspect]
     Dates: start: 20070101

REACTIONS (1)
  - DEAFNESS NEUROSENSORY [None]
